FAERS Safety Report 9617388 (Version 1)
Quarter: 2013Q4

REPORT INFORMATION
  Report Type: Spontaneous
  Country: US (occurrence: None)
  Receive Date: 20131009
  Receipt Date: 20131009
  Transmission Date: 20140711
  Serious: Yes (Hospitalization)
  Sender: FDA-Public Use
  Company Number: ADR-2013-01796

PATIENT
  Sex: Male

DRUGS (1)
  1. BACLOFEN INTRATHECAL [Suspect]

REACTIONS (18)
  - Pneumonia [None]
  - Staphylococcal infection [None]
  - Overdose [None]
  - Muscle tightness [None]
  - Gastroenteritis viral [None]
  - Vomiting [None]
  - Diarrhoea [None]
  - Confusional state [None]
  - Fatigue [None]
  - Feeling abnormal [None]
  - Medical device site reaction [None]
  - Renal impairment [None]
  - Dehydration [None]
  - Electrolyte imbalance [None]
  - Respiratory rate decreased [None]
  - Oxygen saturation decreased [None]
  - Mental status changes [None]
  - Aspiration [None]
